FAERS Safety Report 17924889 (Version 3)
Quarter: 2020Q3

REPORT INFORMATION
  Report Type: Report from Study
  Country: US (occurrence: US)
  Receive Date: 20200622
  Receipt Date: 20200904
  Transmission Date: 20201103
  Serious: Yes (Death, Hospitalization)
  Sender: FDA-Public Use
  Company Number: US-ROCHE-2626588

PATIENT
  Age: 62 Year
  Sex: Male
  Weight: 83.8 kg

DRUGS (17)
  1. TYLENOL [Concomitant]
     Active Substance: ACETAMINOPHEN
  2. PEPCID [Concomitant]
     Active Substance: FAMOTIDINE
  3. PERI?COLACE [Concomitant]
     Active Substance: CASANTHRANOL\DOCUSATE SODIUM
  4. TOPROL XL [Concomitant]
     Active Substance: METOPROLOL SUCCINATE
  5. PACERONE [Concomitant]
     Active Substance: AMIODARONE HYDROCHLORIDE
  6. ATEZOLIZUMAB. [Suspect]
     Active Substance: ATEZOLIZUMAB
     Indication: HORMONE-REFRACTORY PROSTATE CANCER
     Dosage: ON 20/MAY/2020 MOST RECENT DOSE OF ATEZOLIZUMAB PRIOR TO THE EVENTS.
     Route: 041
     Dates: start: 20200408
  7. ATIVAN [Concomitant]
     Active Substance: LORAZEPAM
  8. DELTASONE [Concomitant]
     Active Substance: PREDNISONE
  9. VESICARE [Concomitant]
     Active Substance: SOLIFENACIN SUCCINATE
  10. XL184 [Suspect]
     Active Substance: CABOZANTINIB
     Indication: HORMONE-REFRACTORY PROSTATE CANCER
     Dosage: ON 09/JUN/2020, THE PATIENT RECEIVED MOST RECENT DOSE OF CABOZANTINIB PRIOR TO THE EVENTS
     Route: 048
     Dates: start: 20200408
  11. ASPIRIN. [Concomitant]
     Active Substance: ASPIRIN
  12. LANTUS [Concomitant]
     Active Substance: INSULIN GLARGINE
  13. HUMALOG [Concomitant]
     Active Substance: INSULIN LISPRO
  14. GLUCOPHAGE [Concomitant]
     Active Substance: METFORMIN HYDROCHLORIDE
  15. SENOKOT [Concomitant]
     Active Substance: SENNOSIDES
  16. DURAGESIC [Concomitant]
     Active Substance: FENTANYL
  17. ADVIL [Concomitant]
     Active Substance: IBUPROFEN

REACTIONS (2)
  - Disease progression [Fatal]
  - Weight decreased [Not Recovered/Not Resolved]

NARRATIVE: CASE EVENT DATE: 20200610
